FAERS Safety Report 10712102 (Version 2)
Quarter: 2015Q1

REPORT INFORMATION
  Report Type: Spontaneous
  Country: US (occurrence: US)
  Receive Date: 20150114
  Receipt Date: 20150209
  Transmission Date: 20150721
  Serious: No
  Sender: FDA-Public Use
  Company Number: US-ASTRAZENECA-2014SE99441

PATIENT
  Age: 53 Year
  Sex: Male
  Weight: 77.1 kg

DRUGS (1)
  1. PULMICORT TURBUHALER [Suspect]
     Active Substance: BUDESONIDE
     Indication: CHRONIC OBSTRUCTIVE PULMONARY DISEASE
     Dosage: 180MCG, 2 PUFFS IN THE MORNING AND UP TO 2 MORE IF NEEDED TOTALING 4 A DAY
     Route: 055
     Dates: start: 201211

REACTIONS (3)
  - Intentional product misuse [Unknown]
  - Feeling abnormal [Unknown]
  - Dyspnoea [Unknown]

NARRATIVE: CASE EVENT DATE: 201211
